FAERS Safety Report 8885758 (Version 3)
Quarter: 2012Q4

REPORT INFORMATION
  Report Type: 
  Country: JP (occurrence: JP)
  Receive Date: 20121102
  Receipt Date: 20121228
  Transmission Date: 20130627
  Serious: Yes (Other)
  Sender: FDA-Public Use
  Company Number: JP-JNJFOC-20121016966

PATIENT
  Age: 35 Year
  Sex: Male

DRUGS (4)
  1. REMICADE [Suspect]
     Indication: CROHN^S DISEASE
     Route: 042
  2. REMICADE [Suspect]
     Indication: CROHN^S DISEASE
     Dosage: 8th infusion
     Route: 042
     Dates: start: 201107
  3. PREDNISOLONE [Suspect]
     Indication: CROHN^S DISEASE
     Route: 048
  4. MESALAZINE [Suspect]
     Indication: CROHN^S DISEASE
     Route: 048

REACTIONS (1)
  - Pneumonia cryptococcal [Recovered/Resolved]
